FAERS Safety Report 17809885 (Version 1)
Quarter: 2020Q2

REPORT INFORMATION
  Report Type: Spontaneous
  Country: US (occurrence: US)
  Receive Date: 20200521
  Receipt Date: 20200521
  Transmission Date: 20200714
  Serious: Yes (Other)
  Sender: FDA-Public Use
  Company Number: US-ROCHE-2600316

PATIENT
  Sex: Female
  Weight: 72.64 kg

DRUGS (1)
  1. OCREVUS [Suspect]
     Active Substance: OCRELIZUMAB
     Indication: RELAPSING-REMITTING MULTIPLE SCLEROSIS
     Dosage: TAKES EVERY 24 TO 25 WEEKS
     Route: 042
     Dates: start: 201906

REACTIONS (7)
  - Off label use [Unknown]
  - Intentional product use issue [Unknown]
  - Vulval abscess [Recovered/Resolved]
  - Lethargy [Unknown]
  - Skin infection [Recovered/Resolved]
  - Upper respiratory tract infection [Recovered/Resolved]
  - Fatigue [Unknown]
